FAERS Safety Report 10328425 (Version 1)
Quarter: 2014Q3

REPORT INFORMATION
  Report Type: Spontaneous
  Country: US (occurrence: None)
  Receive Date: 20140716
  Receipt Date: 20140716
  Transmission Date: 20150326
  Serious: Yes (Hospitalization)
  Sender: FDA-Public Use
  Company Number: None

PATIENT
  Age: 91 Year
  Sex: Male
  Weight: 67.3 kg

DRUGS (1)
  1. PHENYTOIN. [Suspect]
     Active Substance: PHENYTOIN
     Indication: CONVULSION
     Route: 048
     Dates: start: 20130217, end: 20130222

REACTIONS (5)
  - Dementia [None]
  - Confusional state [None]
  - Transaminases increased [None]
  - Asthenia [None]
  - Disease progression [None]

NARRATIVE: CASE EVENT DATE: 20130222
